FAERS Safety Report 16930787 (Version 7)
Quarter: 2020Q2

REPORT INFORMATION
  Report Type: Spontaneous
  Country: US (occurrence: US)
  Receive Date: 20191017
  Receipt Date: 20200609
  Transmission Date: 20200713
  Serious: Yes (Other)
  Sender: FDA-Public Use
  Company Number: US-PFIZER INC-2019450380

PATIENT
  Age: 61 Year
  Sex: Female
  Weight: 63.5 kg

DRUGS (6)
  1. MORPHINE [Concomitant]
     Active Substance: MORPHINE
     Indication: PAIN
     Dosage: 15 MG, 2X/DAY
  2. LYRICA [Suspect]
     Active Substance: PREGABALIN
     Indication: RHEUMATOID ARTHRITIS
     Dosage: UNK
  3. OXYCODONE [Concomitant]
     Active Substance: OXYCODONE
     Indication: PAIN
     Dosage: 10 MG, 3X/DAY
  4. PRILOSEC [Concomitant]
     Active Substance: OMEPRAZOLE MAGNESIUM
     Indication: GASTRIC BYPASS
     Dosage: UNK, 2X/DAY (DOSE UNKNOWN, TWICE A DAY)
  5. LYRICA [Suspect]
     Active Substance: PREGABALIN
     Indication: BONE DISORDER
     Dosage: 150 MG, 3X/DAY
     Route: 048
  6. FIORICET [Concomitant]
     Active Substance: ACETAMINOPHEN\BUTALBITAL\CAFFEINE
     Indication: MIGRAINE
     Dosage: UNK

REACTIONS (7)
  - Memory impairment [Unknown]
  - Rib fracture [Not Recovered/Not Resolved]
  - Body height decreased [Unknown]
  - Product use in unapproved indication [Unknown]
  - Off label use [Unknown]
  - Fall [Not Recovered/Not Resolved]
  - Drug effective for unapproved indication [Unknown]

NARRATIVE: CASE EVENT DATE: 20200401
